FAERS Safety Report 6535583-9 (Version None)
Quarter: 2009Q4

REPORT INFORMATION
  Report Type: 
  Country: None (occurrence: None)
  Receive Date: 20091228
  Receipt Date: 20081222
  Transmission Date: 20100525
  Serious: Yes (Life-Threatening, Hospitalization)
  Sender: FDA-Public Use
  Company Number: US-002295

PATIENT
  Age: 63 Year
  Sex: Male
  Weight: 68 kg

DRUGS (2)
  1. MULTIHANCE [Suspect]
     Indication: NUCLEAR MAGNETIC RESONANCE IMAGING
     Dosage: 15 ML INTRAVENOUS
     Route: 042
     Dates: start: 20081220, end: 20081220
  2. MULTIHANCE [Suspect]
     Indication: UNEVALUABLE EVENT
     Dosage: 15 ML INTRAVENOUS
     Route: 042
     Dates: start: 20081220, end: 20081220

REACTIONS (1)
  - ANAPHYLACTOID REACTION [None]
